FAERS Safety Report 23314264 (Version 2)
Quarter: 2024Q2

REPORT INFORMATION
  Report Type: Spontaneous
  Country: US (occurrence: US)
  Receive Date: 20231219
  Receipt Date: 20240515
  Transmission Date: 20240716
  Serious: Yes (Hospitalization, Other)
  Sender: FDA-Public Use
  Company Number: US-SANOFI-01878216

PATIENT
  Age: 71 Year
  Sex: Male
  Weight: 73 kg

DRUGS (3)
  1. PLAVIX [Suspect]
     Active Substance: CLOPIDOGREL BISULFATE
     Indication: Product used for unknown indication
     Dosage: 75 MG
     Route: 048
  2. ASPIRIN [Concomitant]
     Active Substance: ASPIRIN
     Dosage: UNK
  3. METOPROLOL [Concomitant]
     Active Substance: METOPROLOL
     Dosage: UNK

REACTIONS (3)
  - Myocardial infarction [Unknown]
  - Hospitalisation [Unknown]
  - Weight decreased [Unknown]

NARRATIVE: CASE EVENT DATE: 20231205
